FAERS Safety Report 11992334 (Version 2)
Quarter: 2016Q1

REPORT INFORMATION
  Report Type: Spontaneous
  Country: US (occurrence: US)
  Receive Date: 20160203
  Receipt Date: 20160222
  Transmission Date: 20160526
  Serious: No
  Sender: FDA-Public Use
  Company Number: US-JNJFOC-20160109103

PATIENT
  Age: 77 Year
  Sex: Female
  Weight: 56.7 kg

DRUGS (9)
  1. CENTRUM SILVER [Concomitant]
     Active Substance: MINERALS\VITAMINS
     Indication: NUTRITIONAL SUPPLEMENTATION
     Dosage: YEARS
     Route: 065
  2. CALCIUM [Concomitant]
     Active Substance: CALCIUM
     Indication: NUTRITIONAL SUPPLEMENTATION
     Route: 065
  3. TYLENOL 8 HR ARTHRITIS PAIN [Suspect]
     Active Substance: ACETAMINOPHEN
     Route: 048
  4. OSTEO BI-FLEX [Concomitant]
     Active Substance: CHONDROITIN SULFATE A\GLUCOSAMINE
     Indication: NUTRITIONAL SUPPLEMENTATION
     Route: 065
  5. ALL OTHER THERAPEUTIC PRODUCTS [Concomitant]
     Active Substance: UNSPECIFIED INGREDIENT
     Indication: ARTHRITIS
     Dosage: YEARS
     Route: 065
  6. FISH OIL [Concomitant]
     Active Substance: FISH OIL
     Indication: CARDIAC DISORDER
     Dosage: YEARS
     Route: 065
  7. TYLENOL 8 HR ARTHRITIS PAIN [Suspect]
     Active Substance: ACETAMINOPHEN
     Indication: PRODUCT USED FOR UNKNOWN INDICATION
     Dosage: 2 CAPLETS, TWICE
     Route: 048
     Dates: end: 20160111
  8. ZOCOR [Concomitant]
     Active Substance: SIMVASTATIN
     Indication: BLOOD CHOLESTEROL INCREASED
     Route: 065
  9. COQ10 [Concomitant]
     Active Substance: UBIDECARENONE
     Indication: BLOOD CHOLESTEROL INCREASED
     Dosage: YEARS
     Route: 065

REACTIONS (3)
  - Head discomfort [Recovered/Resolved]
  - Headache [Recovered/Resolved]
  - Feeling abnormal [Recovered/Resolved]
